FAERS Safety Report 5368186-2 (Version None)
Quarter: 2007Q2

REPORT INFORMATION
  Report Type: 
  Country: None (occurrence: None)
  Receive Date: 20070625
  Receipt Date: 20070620
  Transmission Date: 20071010
  Serious: Yes (Hospitalization)
  Sender: FDA-Public Use
  Company Number: PHEH2007US08306

PATIENT
  Age: 67 Year
  Sex: Male

DRUGS (5)
  1. TEKTURNA [Suspect]
     Indication: HYPERTENSION
     Dosage: 150 MG, QD
     Route: 048
     Dates: start: 20070422
  2. TEKTURNA [Suspect]
     Dosage: 300 MG, QD
     Route: 048
     Dates: end: 20070602
  3. TOPROL-XL [Concomitant]
  4. DIOVAN HCT [Concomitant]
  5. SYNTHROID [Concomitant]

REACTIONS (17)
  - AMYOTROPHIC LATERAL SCLEROSIS [None]
  - APNOEA [None]
  - BLOOD CHLORIDE DECREASED [None]
  - BLOOD GASES ABNORMAL [None]
  - BLOOD SODIUM DECREASED [None]
  - CHRONIC RESPIRATORY FAILURE [None]
  - DIAPHRAGMATIC PARALYSIS [None]
  - DYSPNOEA [None]
  - HYPERCAPNIA [None]
  - HYPOVENTILATION [None]
  - INTUBATION [None]
  - LYMPHOEDEMA [None]
  - MOTOR NEURONE DISEASE [None]
  - PCO2 INCREASED [None]
  - PERIORBITAL OEDEMA [None]
  - THYROXINE INCREASED [None]
  - TRACHEOSTOMY [None]
